FAERS Safety Report 6024831-X (Version None)
Quarter: 2008Q4

REPORT INFORMATION
  Report Type: 
  Country: None (occurrence: None)
  Receive Date: 20081230
  Receipt Date: 20081230
  Transmission Date: 20090506
  Serious: Yes (Other)
  Sender: FDA-Public Use
  Company Number: None

PATIENT
  Age: 57 Year
  Sex: Male
  Weight: 143.7903 kg

DRUGS (1)
  1. ACTOS [Suspect]
     Indication: TYPE 2 DIABETES MELLITUS
     Dosage: ONE TAB DAILY PO
     Route: 048
     Dates: start: 20081201, end: 20081229

REACTIONS (14)
  - BALANCE DISORDER [None]
  - DEPRESSION [None]
  - DISORIENTATION [None]
  - DRY EYE [None]
  - DRY MOUTH [None]
  - DRY THROAT [None]
  - EMOTIONAL DISORDER [None]
  - FEELING ABNORMAL [None]
  - HYPERSENSITIVITY [None]
  - LISTLESS [None]
  - NASAL DRYNESS [None]
  - NIGHTMARE [None]
  - PRURITUS [None]
  - THINKING ABNORMAL [None]
